FAERS Safety Report 23074685 (Version 1)
Quarter: 2023Q4

REPORT INFORMATION
  Report Type: Spontaneous
  Country: JP (occurrence: JP)
  Receive Date: 20231017
  Receipt Date: 20231017
  Transmission Date: 20240109
  Serious: Yes (Hospitalization)
  Sender: FDA-Public Use
  Company Number: JP-TEVA-2023-JP-2936050

PATIENT
  Age: 85 Year
  Sex: Female
  Weight: 48.4 kg

DRUGS (2)
  1. CLOPIDOGREL [Suspect]
     Active Substance: CLOPIDOGREL BISULFATE
     Indication: Embolic stroke
     Dosage: 75 MILLIGRAM DAILY;
     Route: 065
  2. DABIGATRAN [Suspect]
     Active Substance: DABIGATRAN
     Indication: Embolic stroke
     Dosage: 110 MILLIGRAM DAILY;
     Route: 065

REACTIONS (2)
  - Urinary bladder haemorrhage [Recovering/Resolving]
  - Bladder tamponade [Recovering/Resolving]
